FAERS Safety Report 8189620-9 (Version None)
Quarter: 2012Q1

REPORT INFORMATION
  Report Type: 
  Country: None (occurrence: None)
  Receive Date: 20120307
  Receipt Date: 20120229
  Transmission Date: 20120608
  Serious: Yes (Death, Hospitalization)
  Sender: FDA-Public Use
  Company Number: FR-BRISTOL-MYERS SQUIBB COMPANY-16427239

PATIENT
  Age: 75 Year
  Sex: Male

DRUGS (8)
  1. FLECAINIDE ACETATE [Concomitant]
     Dosage: 1 DF : 100 UNITS NOS
  2. COUMADIN [Suspect]
     Indication: ATRIAL FIBRILLATION
     Dosage: 1 DF : 1.25 UNITS NOS
     Route: 048
  3. MONICOR LP [Concomitant]
     Dosage: 1 DF : 60 UNITS NOS
  4. FOLIC ACID [Concomitant]
  5. LEXOMIL [Concomitant]
     Dosage: 1 DF : 0.5 UNITS NOS
     Route: 048
  6. ATORVASTATIN [Concomitant]
  7. POLYETHYLENE GLYCOL [Concomitant]
     Dosage: 1 DF : 4000 UNITS NOS
  8. ACETAMINOPHEN [Concomitant]
     Dosage: 1 DF : 500 UNITS NOS

REACTIONS (2)
  - CEREBRAL HAEMATOMA [None]
  - FALL [None]
